FAERS Safety Report 4421347-9 (Version None)
Quarter: 2004Q3

REPORT INFORMATION
  Report Type: 
  Country: None (occurrence: None)
  Receive Date: 20040706
  Receipt Date: 20040416
  Transmission Date: 20050211
  Serious: Yes (Life-Threatening)
  Sender: FDA-Public Use
  Company Number: 236397

PATIENT
  Age: 78 Year
  Sex: Female

DRUGS (9)
  1. NOVOLOG [Suspect]
     Indication: DIABETES MELLITUS
     Dosage: SUBCUTANEOUS
     Route: 058
  2. NOVOLIN N [Suspect]
     Indication: DIABETES MELLITUS
     Dosage: SUBCUTANEOUS
     Route: 058
  3. LIPITOR (ATORCASTATIN) [Concomitant]
  4. MEGASTROL (MEGESTROL) [Concomitant]
  5. DIOVAN ^CIBA-GEIGY^ (VALSARTAN) [Concomitant]
  6. ZOLOFT [Concomitant]
  7. CALCIUM (CALCIUM) [Concomitant]
  8. VITAMIN C (ASCORBIC ACID) [Concomitant]
  9. ARANDAPAN [Concomitant]

REACTIONS (3)
  - BLOOD GLUCOSE DECREASED [None]
  - DIZZINESS [None]
  - HYPOGLYCAEMIC COMA [None]
